FAERS Safety Report 25894841 (Version 2)
Quarter: 2025Q4

REPORT INFORMATION
  Report Type: Spontaneous
  Country: US (occurrence: US)
  Receive Date: 20251008
  Receipt Date: 20251221
  Transmission Date: 20260117
  Serious: Yes (Hospitalization, Disabling, Other)
  Sender: AMGEN
  Company Number: US-AMGEN-USASP2025197144

PATIENT
  Age: 16 Year
  Sex: Male
  Weight: 28.8 kg

DRUGS (25)
  1. EPOGEN [Suspect]
     Active Substance: ERYTHROPOIETIN
     Indication: Nephrogenic anaemia
     Dosage: 6000 UNIT, 3 TIMES/WK, 200U PER KILO
     Route: 040
     Dates: start: 20200721
  2. CALCIUM CARBONATE [Concomitant]
     Active Substance: CALCIUM CARBONATE
     Dosage: 1250 MILLIGRAM, BID, 1250 MILLIGRAM, BID, 5 MLS (1,250 MG TOTAL) BY PER G TUBE ROUTE 2 (TWO) TIMES D
     Route: 065
  3. ZINC [Concomitant]
     Active Substance: ZINC
     Indication: Product used for unknown indication
     Dosage: UNK
     Route: 065
  4. PREDNISONE [Concomitant]
     Active Substance: PREDNISONE
     Dosage: HEMATOLOGY SUGGESTED TO TRY SHORT COURSE FOR 2-4 WEEKS
     Route: 065
  5. MIDODRINE [Concomitant]
     Active Substance: MIDODRINE
     Dosage: TID, AND PRIOR TO DIALYSIS
  6. DIETARY SUPPLEMENT [Concomitant]
     Active Substance: DIETARY SUPPLEMENT
     Dosage: UNK
  7. SODIUM PHOSPHATE [Concomitant]
     Active Substance: SODIUM PHOSPHATE
     Dosage: 3 MMOL/ML
     Route: 048
  8. TRILEPTAL [Concomitant]
     Active Substance: OXCARBAZEPINE
     Indication: Seizure
     Dosage: 450 MILLIGRAM, BID, 300 MG/5 ML (60 MG/ML)
  9. FLONASE [Concomitant]
     Active Substance: FLUTICASONE PROPIONATE
     Dosage: 50 MCG MCG/ACTUATION NASAL SPRAY, 1-2 SPRAYS IN EACH NOSTRIL DAILY.
  10. ZYRTEC [Concomitant]
     Active Substance: CETIRIZINE HYDROCHLORIDE
  11. ALBUTEROL SULFATE [Concomitant]
     Active Substance: ALBUTEROL SULFATE
     Indication: Wheezing
     Dosage: 90 MICROGRAM, INHALE 2 PUFFS INTO THE LUNGS EVERY 4 (FOUR) HOURS AS NEEDED
  12. ALBUTEROL SULFATE [Concomitant]
     Active Substance: ALBUTEROL SULFATE
     Indication: Dyspnoea
  13. ISOPTO ATROPINE [Concomitant]
     Active Substance: ATROPINE SULFATE
     Dosage: PLACE 1 DROP UNDER THE TONGUE 2 (TWO) TIMES DAILY AS NEEDED,
     Route: 060
  14. DIETARY SUPPLEMENT [Concomitant]
     Active Substance: DIETARY SUPPLEMENT
     Dosage: 6 GRAM-25 KCAL/7 GRAM
  15. CETIRIZINE [Concomitant]
     Active Substance: CETIRIZINE HYDROCHLORIDE
     Indication: Hypersensitivity
     Dosage: TAKE 5-10 MLS (5-10 MG TOTAL) BY MOUTH DAILY AS NEEDED
     Route: 048
  16. CETIRIZINE [Concomitant]
     Active Substance: CETIRIZINE HYDROCHLORIDE
     Indication: Rhinitis
  17. VALTOCO [Concomitant]
     Active Substance: DIAZEPAM
     Indication: Seizure
     Dosage: 10 MG/SPRAY (0.1 ML)
     Route: 045
  18. ROBINUL [Concomitant]
     Active Substance: GLYCOPYRROLATE
     Dosage: 0.2 MILLIGRAM PER MILLILITRE, TID FOR 120 DAYS
  19. PROAMATINE [Concomitant]
     Active Substance: MIDODRINE HYDROCHLORIDE
     Indication: Dialysis
     Dosage: 10 MILLIGRAM, ON DIALYSIS DAYS GIVE EXTRA 10 MG PRE HD. DOSING ON DIALYSIS DAYS WILL BE 10 MG AM, 10
  20. OCEAN SALINE NASAL SPRAY [Concomitant]
     Active Substance: SODIUM CHLORIDE
     Indication: Nasal congestion
     Dosage: 1 SPRAY IN EACH NOSTRIL AS NEEDED
  21. DIALYVITE [Concomitant]
     Active Substance: ASCORBIC ACID\BIOTIN\CALCIUM PANTOTHENATE\COBALAMIN\FOLIC ACID\NIACINAMIDE\PYRIDOXINE HYDROCHLORIDE\
     Dosage: 100-1 MG, TAKE I TABLET PER G-TUBE ONCE DAILY
  22. PREVACID [Concomitant]
     Active Substance: LANSOPRAZOLE
     Dosage: 3 MILLIGRAM PER MILLILITRE, EVERY MORNING BEFORE REAKFAST FOR 30 DAYS
     Route: 048
  23. MYCOLOG-II [Concomitant]
     Active Substance: NYSTATIN\TRIAMCINOLONE ACETONIDE
     Dosage: APPLY 1 APPLICATION OPICALLY 4 (FOUR) TIMES DAILY, APPLY TO RASH 4 TIMES PER DAY WITH DIAPER CHANGE
     Route: 061
  24. NEPHRO VITE RX [Concomitant]
     Active Substance: ASCORBIC ACID\BIOTIN\CALCIUM PANTOTHENATE\CYANOCOBALAMIN\FOLIC ACID\NIACINAMIDE\PYRIDOXINE HYDROCHLO
     Dosage: 60-300 MG-MG-MCG TUBE ROUTE DAILY
  25. ZINC SULFATE [Concomitant]
     Active Substance: ZINC SULFATE
     Dosage: 10 MILLIGRAM PER MILLILITRE
     Route: 048

REACTIONS (8)
  - Sepsis [Unknown]
  - Pyelonephritis [Unknown]
  - Unevaluable event [Unknown]
  - Haemoglobin decreased [Recovered/Resolved]
  - Aplasia pure red cell [Unknown]
  - Bone marrow failure [Not Recovered/Not Resolved]
  - Congenital hypothyroidism [Not Recovered/Not Resolved]
  - Seizure [Not Recovered/Not Resolved]

NARRATIVE: CASE EVENT DATE: 20240614
